FAERS Safety Report 9061498 (Version 1)
Quarter: 2013Q1

REPORT INFORMATION
  Report Type: Spontaneous
  Country: US (occurrence: None)
  Receive Date: 20130118
  Receipt Date: 20130118
  Transmission Date: 20140127
  Serious: Yes (Death)
  Sender: FDA-Public Use
  Company Number: 2013P1000400

PATIENT
  Age: 31 Year
  Sex: Female

DRUGS (7)
  1. BUTALBITAL, ACETAMINOPHEN, CAFFEINE + CODEINE [Suspect]
     Indication: COMPLETED SUICIDE
     Dosage: ; PO?UNKNOWN  -  UNKNOWN
     Route: 048
  2. CYCLOBENZAPRINE [Suspect]
     Indication: COMPLETED SUICIDE
     Dosage: ; PO?UNKNOWN  -  UNKNOWN
     Route: 048
  3. QUETIAPINE [Suspect]
     Indication: COMPLETED SUICIDE
     Dosage: ; PO?UNKNOWN  - UNKNOWN
     Route: 048
  4. ACETAMINOPHEN\HYDROCODONE [Suspect]
     Indication: COMPLETED SUICIDE
     Dosage: ; PO?UNKNOWN  -  UNKNOWN
     Route: 048
  5. TEMAZEPAM [Suspect]
     Indication: COMPLETED SUICIDE
     Dosage: ; PO?UNKNOWN  -  UNKNOWN
     Route: 048
  6. ACETAMINOPHEN/OXYCODONE [Suspect]
     Indication: COMPLETED SUICIDE
     Dosage: ; PO?UNKNOWN  -  UNKNOWN
     Route: 048
  7. LORATIDINE [Suspect]
     Indication: COMPLETED SUICIDE
     Dosage: ; PO?UNKNOWN  -   UNKNOWN
     Route: 048

REACTIONS (2)
  - Completed suicide [None]
  - Unevaluable event [None]
